FAERS Safety Report 10663104 (Version 2)
Quarter: 2015Q1

REPORT INFORMATION
  Report Type: Spontaneous
  Country: US (occurrence: US)
  Receive Date: 20141218
  Receipt Date: 20150209
  Transmission Date: 20150720
  Serious: Yes (Death, Life-Threatening, Other)
  Sender: FDA-Public Use
  Company Number: US-ASTRAZENECA-2014SE95820

PATIENT
  Age: 112 Day
  Sex: Male

DRUGS (6)
  1. SYNAGIS [Suspect]
     Active Substance: PALIVIZUMAB
     Indication: PREMATURE BABY
     Route: 030
     Dates: start: 20141121, end: 20141121
  2. PEPCID [Concomitant]
     Active Substance: FAMOTIDINE
     Indication: GASTROOESOPHAGEAL REFLUX DISEASE
     Dosage: 40 MG/5 ML, 0.25 ML BID
     Route: 048
     Dates: start: 20141121
  3. POLY-VI-SOL/ FE [Concomitant]
     Indication: ANAEMIA
     Route: 048
  4. SYNAGIS [Suspect]
     Active Substance: PALIVIZUMAB
     Indication: PREMATURE BABY
     Route: 030
     Dates: start: 20141113, end: 20141204
  5. SYNAGIS [Suspect]
     Active Substance: PALIVIZUMAB
     Indication: PREMATURE BABY
     Route: 030
     Dates: start: 20141121, end: 20141121
  6. SYNAGIS [Suspect]
     Active Substance: PALIVIZUMAB
     Indication: PREMATURE BABY
     Route: 030
     Dates: start: 20141113, end: 20141204

REACTIONS (4)
  - Respiratory arrest [Unknown]
  - Death [Fatal]
  - Unresponsive to stimuli [Unknown]
  - Cyanosis [Unknown]

NARRATIVE: CASE EVENT DATE: 20141204
